FAERS Safety Report 5500951-0 (Version None)
Quarter: 2007Q4

REPORT INFORMATION
  Report Type: 
  Country: None (occurrence: None)
  Receive Date: 20071029
  Receipt Date: 20071027
  Transmission Date: 20080405
  Serious: Yes (Hospitalization)
  Sender: FDA-Public Use
  Company Number: PHHO2006GB00906

PATIENT
  Age: 75 Year
  Sex: Male
  Weight: 96.5 kg

DRUGS (9)
  1. TIMOPTIC [Concomitant]
     Indication: GLAUCOMA
  2. LOSARTAN POTASSIUM [Concomitant]
     Indication: HYPERTENSION
     Dosage: 100 MG / DAY
     Route: 048
     Dates: start: 20050603
  3. METFORMIN HCL [Concomitant]
  4. SIMVASTATIN [Concomitant]
  5. BENDROFLUMETHIAZIDE [Concomitant]
  6. AMLODIPINE [Concomitant]
  7. HUMAN INSULATARD [Concomitant]
  8. DOXAZOSIN MESYLATE [Concomitant]
  9. ALISKIREN VS PLACEBO [Suspect]
     Indication: HYPERTENSION
     Dosage: 150 MG, QD
     Route: 048
     Dates: start: 20051011

REACTIONS (7)
  - ATRIOVENTRICULAR BLOCK FIRST DEGREE [None]
  - CARDIAC FAILURE [None]
  - CARDIOMEGALY [None]
  - DYSPNOEA [None]
  - ISCHAEMIA [None]
  - OEDEMA PERIPHERAL [None]
  - PULMONARY OEDEMA [None]
